FAERS Safety Report 20170120 (Version 4)
Quarter: 2022Q1

REPORT INFORMATION
  Report Type: Report from Study
  Country: IE (occurrence: IE)
  Receive Date: 20211210
  Receipt Date: 20220211
  Transmission Date: 20220423
  Serious: Yes (Hospitalization, Other)
  Sender: FDA-Public Use
  Company Number: IE-BRISTOL-MYERS SQUIBB COMPANY-BMS-2021-103177

PATIENT
  Age: 65 Year
  Sex: Male

DRUGS (4)
  1. NIVOLUMAB [Suspect]
     Active Substance: NIVOLUMAB
     Indication: Metastatic renal cell carcinoma
     Dosage: UNK
     Route: 042
     Dates: start: 20211004
  2. NIVOLUMAB [Suspect]
     Active Substance: NIVOLUMAB
     Dosage: CYCLE 2
     Route: 042
     Dates: start: 20211110, end: 20211202
  3. IPILIMUMAB [Suspect]
     Active Substance: IPILIMUMAB
     Indication: Metastatic renal cell carcinoma
     Dosage: UNK
     Route: 042
     Dates: start: 20211004
  4. IPILIMUMAB [Suspect]
     Active Substance: IPILIMUMAB
     Dosage: CYCLE 2
     Route: 042
     Dates: start: 20211110, end: 20211202

REACTIONS (14)
  - Pulmonary embolism [Not Recovered/Not Resolved]
  - Adrenal insufficiency [Recovering/Resolving]
  - Malaise [Not Recovered/Not Resolved]
  - Blood calcium increased [Not Recovered/Not Resolved]
  - Cough [Recovering/Resolving]
  - Malignant neoplasm progression [Unknown]
  - Asthenia [Unknown]
  - Insomnia [Unknown]
  - Decreased appetite [Unknown]
  - Full blood count decreased [Recovered/Resolved]
  - Constipation [Unknown]
  - Bowel movement irregularity [Unknown]
  - Limb mass [Unknown]
  - Pain [Unknown]

NARRATIVE: CASE EVENT DATE: 20211004
